FAERS Safety Report 7383165-1 (Version None)
Quarter: 2011Q1

REPORT INFORMATION
  Report Type: 
  Country: None (occurrence: None)
  Receive Date: 20110325
  Receipt Date: 20110325
  Transmission Date: 20110831
  Serious: Yes (Hospitalization)
  Sender: FDA-Public Use
  Company Number: None

PATIENT
  Age: 91 Year
  Sex: Male

DRUGS (8)
  1. BACTRIM [Suspect]
     Indication: URINARY TRACT INFECTION
     Dosage: 2 TABS BID PO RECENT
     Route: 048
  2. PREDNISONE [Concomitant]
  3. MIRALAX [Concomitant]
  4. FLOMAX [Concomitant]
  5. COUMADIN [Suspect]
     Indication: AORTIC VALVE REPLACEMENT
     Dosage: 2.5MG DAILY PO CHRONIC
     Route: 048
  6. LASIX [Concomitant]
  7. COREG [Concomitant]
  8. ALLOPURINOL [Concomitant]

REACTIONS (6)
  - INTERNATIONAL NORMALISED RATIO INCREASED [None]
  - NAUSEA [None]
  - HAEMOGLOBIN DECREASED [None]
  - HAEMATOCRIT DECREASED [None]
  - EROSIVE OESOPHAGITIS [None]
  - VOMITING [None]
